FAERS Safety Report 25979022 (Version 1)
Quarter: 2025Q4

REPORT INFORMATION
  Report Type: Report from Study
  Country: CA (occurrence: CA)
  Receive Date: 20251030
  Receipt Date: 20251030
  Transmission Date: 20260117
  Serious: Yes (Death, Hospitalization, Other)
  Sender: BIOCON
  Company Number: CA-BIOCON BIOLOGICS LIMITED-BBL2025005906

PATIENT

DRUGS (6)
  1. ADALIMUMAB [Suspect]
     Active Substance: ADALIMUMAB
     Indication: Hidradenitis
     Dosage: 160 MILLIGRAM
     Route: 058
  2. ADALIMUMAB [Suspect]
     Active Substance: ADALIMUMAB
     Dosage: 80 MILLIGRAM, SOLUTION FOR INJECTION
     Route: 058
  3. ADALIMUMAB [Suspect]
     Active Substance: ADALIMUMAB
     Dosage: 40 MILLIGRAM, QW, SOLUTION FOR INJECTION
     Route: 058
  4. ADALIMUMAB [Suspect]
     Active Substance: ADALIMUMAB
  5. ADALIMUMAB [Suspect]
     Active Substance: ADALIMUMAB
  6. METFORMIN [Concomitant]
     Active Substance: METFORMIN HYDROCHLORIDE
     Indication: Product used for unknown indication
     Dosage: UNK
     Route: 065

REACTIONS (14)
  - Tracheostomy [Fatal]
  - Weaning failure [Fatal]
  - Pneumothorax [Fatal]
  - Surgical vascular shunt [Fatal]
  - Hepatic enzyme increased [Fatal]
  - Enteral nutrition [Fatal]
  - Gastrostomy [Fatal]
  - Aspiration [Fatal]
  - Disseminated tuberculosis [Fatal]
  - Tuberculosis of central nervous system [Fatal]
  - Meningitis tuberculous [Fatal]
  - Product use issue [Fatal]
  - Intercepted product prescribing error [Fatal]
  - Intentional dose omission [Fatal]
